FAERS Safety Report 8321273-9 (Version None)
Quarter: 2012Q2

REPORT INFORMATION
  Report Type: 
  Country: None (occurrence: None)
  Receive Date: 20120430
  Receipt Date: 20120419
  Transmission Date: 20120825
  Serious: Yes (Hospitalization)
  Sender: FDA-Public Use
  Company Number: JP-BRISTOL-MYERS SQUIBB COMPANY-16151334

PATIENT
  Age: 10 Year
  Sex: Female

DRUGS (4)
  1. PARAPLATIN AQ [Suspect]
     Indication: PREMEDICATION
     Route: 042
     Dates: start: 20110926, end: 20110928
  2. PARAPLATIN AQ [Suspect]
     Indication: RHABDOMYOSARCOMA
     Route: 042
     Dates: start: 20110926, end: 20110928
  3. VEPESID [Suspect]
     Indication: RHABDOMYOSARCOMA
     Route: 042
     Dates: start: 20110926, end: 20110927
  4. VEPESID [Suspect]
     Indication: PREMEDICATION
     Route: 042
     Dates: start: 20110926, end: 20110927

REACTIONS (1)
  - PAROTITIS [None]
